FAERS Safety Report 7729373-9 (Version None)
Quarter: 2011Q3

REPORT INFORMATION
  Report Type: 
  Country: None (occurrence: None)
  Receive Date: 20110906
  Receipt Date: 20110824
  Transmission Date: 20111222
  Serious: Yes (Hospitalization)
  Sender: FDA-Public Use
  Company Number: JP-UCBSA-039315

PATIENT
  Sex: Female

DRUGS (12)
  1. MECOBALAMIN [Concomitant]
     Dosage: TOTAL DAILY DOSE: 1500 MCG
     Dates: start: 20110808
  2. CELECOXIB [Concomitant]
     Dates: start: 20101108
  3. KETOPROFEN [Concomitant]
     Dosage: ADEQUATE DOSE, PRN.
     Dates: start: 20101014
  4. LOXOPROFEN SODIUM HYDRATE [Concomitant]
     Dosage: TOTAL DAILY DOSE: 180 MG
     Dates: start: 20110808
  5. BUCILLAMINE [Concomitant]
     Dosage: TOTAL DAILY DOSE:200 MG
     Dates: start: 20110723
  6. NILVADIPINE [Concomitant]
     Dates: start: 20100803
  7. EPERISONE HYDROCHLORIDE [Concomitant]
     Dosage: TOTAL DAILY DOSE: 150 MG
     Dates: start: 20110808
  8. ACTARIT [Concomitant]
  9. CERTOLIZUMAB PEGOL [Suspect]
     Indication: RHEUMATOID ARTHRITIS
     Dosage: 10/NOV/2009-UNKNOWN:400MG/2 WEEKS;UNKNOWN-200MG/2 WEEKS. 25/MAY/2010-22/APR/2011;400MG/4 WEEKS
     Route: 058
     Dates: start: 20110520, end: 20110802
  10. FAMOTIDINE [Concomitant]
     Dosage: TOTAL DAILY DOSE: 40 MG
     Dates: start: 20100401
  11. VALSARTAN [Concomitant]
     Dosage: TOTAL DAILY DOSE: 80 MG
     Dates: start: 20021126
  12. SUPPOSITORY [Concomitant]
     Dates: start: 20110813

REACTIONS (1)
  - DUODENITIS [None]
